FAERS Safety Report 12701720 (Version 3)
Quarter: 2018Q2

REPORT INFORMATION
  Report Type: Spontaneous
  Country: US (occurrence: US)
  Receive Date: 20160831
  Receipt Date: 20180502
  Transmission Date: 20180711
  Serious: Yes (Other)
  Sender: FDA-Public Use
  Company Number: US-JAZZ-2016-US-007393

PATIENT
  Sex: Female

DRUGS (10)
  1. LUPRON [Concomitant]
     Active Substance: LEUPROLIDE ACETATE
  2. ALBUTEROL. [Concomitant]
     Active Substance: ALBUTEROL
  3. XYREM [Suspect]
     Active Substance: SODIUM OXYBATE
     Indication: NARCOLEPSY
     Dosage: 2.25 G, BID
     Route: 048
     Dates: start: 201603, end: 201603
  4. XYREM [Suspect]
     Active Substance: SODIUM OXYBATE
     Indication: CATAPLEXY
     Dosage: DOSE ADJUSTMENTS
     Route: 048
     Dates: start: 2016, end: 2016
  5. TRAMADOL. [Concomitant]
     Active Substance: TRAMADOL
  6. XYREM [Suspect]
     Active Substance: SODIUM OXYBATE
     Dosage: 4.5 G, BID
     Route: 048
     Dates: start: 201604
  7. FLONASE [Concomitant]
     Active Substance: FLUTICASONE PROPIONATE
  8. XYREM [Suspect]
     Active Substance: SODIUM OXYBATE
     Dosage: 3 G, SINGLE
     Route: 048
  9. ADDERALL [Concomitant]
     Active Substance: AMPHETAMINE ASPARTATE\AMPHETAMINE SULFATE\DEXTROAMPHETAMINE SACCHARATE\DEXTROAMPHETAMINE SULFATE
  10. NUVIGIL [Concomitant]
     Active Substance: ARMODAFINIL

REACTIONS (7)
  - Anxiety [Not Recovered/Not Resolved]
  - Depression [Recovering/Resolving]
  - Drug tolerance [Unknown]
  - Panic attack [Not Recovered/Not Resolved]
  - Neurological symptom [Unknown]
  - Suicidal ideation [Recovered/Resolved]
  - Condition aggravated [Not Recovered/Not Resolved]

NARRATIVE: CASE EVENT DATE: 2016
